FAERS Safety Report 8392070-3 (Version None)
Quarter: 2012Q2

REPORT INFORMATION
  Report Type: 
  Country: None (occurrence: None)
  Receive Date: 20120529
  Receipt Date: 20120518
  Transmission Date: 20120825
  Serious: Yes (Other)
  Sender: FDA-Public Use
  Company Number: US-ASTRAZENECA-2011SE32575

PATIENT
  Age: 56 Year
  Sex: Male
  Weight: 70.3 kg

DRUGS (6)
  1. CYCLOBENZATRINE [Concomitant]
     Indication: MUSCLE RELAXANT THERAPY
  2. CARDEDILOL [Concomitant]
     Indication: CARDIAC DISORDER
  3. CHOLESTEROL MEDICATION [Concomitant]
  4. NEXIUM [Suspect]
     Indication: GASTROOESOPHAGEAL REFLUX DISEASE
     Route: 048
     Dates: start: 20080101, end: 20100101
  5. TRAMADOL HCL [Concomitant]
     Indication: PAIN
  6. ENALAPRIL MALEATE [Concomitant]
     Indication: CARDIAC DISORDER

REACTIONS (6)
  - ACCIDENT [None]
  - ROTATOR CUFF SYNDROME [None]
  - JOINT INJURY [None]
  - INTERVERTEBRAL DISC DEGENERATION [None]
  - CARDIAC FAILURE CONGESTIVE [None]
  - INTENTIONAL DRUG MISUSE [None]
